FAERS Safety Report 6177205-5 (Version None)
Quarter: 2009Q2

REPORT INFORMATION
  Report Type: 
  Country: None (occurrence: None)
  Receive Date: 20090430
  Receipt Date: 20090430
  Transmission Date: 20091009
  Serious: Yes (Life-Threatening, Hospitalization, Other)
  Sender: FDA-Public Use
  Company Number: None

PATIENT
  Age: 40 Year
  Sex: Female
  Weight: 63.5036 kg

DRUGS (1)
  1. CYMBALTA [Suspect]
     Indication: DEPRESSION
     Dosage: ONCE DAILY PO
     Route: 048

REACTIONS (5)
  - ANOREXIA [None]
  - CRYING [None]
  - IMPAIRED SELF-CARE [None]
  - INSOMNIA [None]
  - PAIN [None]
